FAERS Safety Report 25440070 (Version 1)
Quarter: 2025Q2

REPORT INFORMATION
  Report Type: Spontaneous
  Country: JP (occurrence: JP)
  Receive Date: 20250616
  Receipt Date: 20250616
  Transmission Date: 20250716
  Serious: Yes (Other)
  Sender: PFIZER
  Company Number: JP-PFIZER INC-202500120090

PATIENT
  Age: 89 Year
  Sex: Male

DRUGS (1)
  1. SOLU-MEDROL [Suspect]
     Active Substance: METHYLPREDNISOLONE SODIUM SUCCINATE
     Indication: Drug eruption
     Route: 042

REACTIONS (6)
  - Drug hypersensitivity [Unknown]
  - Drug eruption [Unknown]
  - Condition aggravated [Unknown]
  - Erythema [Unknown]
  - Drug ineffective for unapproved indication [Unknown]
  - Off label use [Unknown]
